FAERS Safety Report 20527673 (Version 1)
Quarter: 2022Q1

REPORT INFORMATION
  Report Type: Spontaneous
  Country: US (occurrence: US)
  Receive Date: 20220228
  Receipt Date: 20220228
  Transmission Date: 20220423
  Serious: No
  Sender: FDA-Public Use
  Company Number: US-PERRIGO-21US029672

PATIENT
  Age: 85 Year
  Sex: Female
  Weight: 63.492 kg

DRUGS (4)
  1. ESTRADIOL [Suspect]
     Active Substance: ESTRADIOL
     Indication: Lichen sclerosus
     Dosage: 1 G, TWICE WEEKLY
     Route: 067
     Dates: start: 20210919, end: 20211014
  2. CRESTOR [Concomitant]
     Active Substance: ROSUVASTATIN CALCIUM
     Indication: Lipids increased
     Dosage: UNK
     Route: 065
     Dates: start: 1997
  3. ASPIRIN [Concomitant]
     Active Substance: ASPIRIN
     Indication: Subclavian artery stenosis
     Dosage: UNK
     Route: 065
     Dates: start: 1997
  4. CLOBETASOL PROPIONATE [Concomitant]
     Active Substance: CLOBETASOL PROPIONATE
     Indication: Lichen sclerosus
     Dosage: UNK
     Route: 065
     Dates: start: 1997

REACTIONS (7)
  - Blood pressure increased [Recovered/Resolved]
  - Palpitations [Recovered/Resolved]
  - Muscle tightness [Recovered/Resolved]
  - Heart rate increased [Recovered/Resolved]
  - Chest pain [Recovered/Resolved]
  - Abdominal pain lower [Recovered/Resolved]
  - Off label use [Recovered/Resolved]

NARRATIVE: CASE EVENT DATE: 20210919
